FAERS Safety Report 6472383-2 (Version None)
Quarter: 2009Q4

REPORT INFORMATION
  Report Type: 
  Country: None (occurrence: None)
  Receive Date: 20091201
  Receipt Date: 20091120
  Transmission Date: 20100525
  Serious: Yes (Other)
  Sender: FDA-Public Use
  Company Number: UKP09000195

PATIENT
  Age: 86 Year
  Sex: Female
  Weight: 76 kg

DRUGS (1)
  1. ACTONEL [Suspect]
     Indication: OSTEOPOROSIS
     Dosage: 35 MG, 1/WEEK, ORAL
     Route: 048
     Dates: start: 20090710, end: 20090810

REACTIONS (1)
  - POLYMYALGIA RHEUMATICA [None]
